FAERS Safety Report 21593170 (Version 1)
Quarter: 2022Q4

REPORT INFORMATION
  Report Type: Spontaneous
  Country: AU (occurrence: AU)
  Receive Date: 20221114
  Receipt Date: 20221114
  Transmission Date: 20230113
  Serious: Yes (Other)
  Sender: FDA-Public Use
  Company Number: AU-BAUSCH-BL-2022-019759

PATIENT
  Age: 47 Year
  Sex: Male

DRUGS (3)
  1. PREDNISOLONE [Suspect]
     Active Substance: PREDNISOLONE
     Indication: Immunoglobulin G4 related disease
     Route: 048
  2. HYDROCORTISONE [Suspect]
     Active Substance: HYDROCORTISONE
     Indication: Immunoglobulin G4 related disease
     Route: 042
  3. AZATHIOPRINE [Suspect]
     Active Substance: AZATHIOPRINE
     Indication: Immunomodulatory therapy
     Route: 065

REACTIONS (3)
  - Osteonecrosis [Unknown]
  - Oesophageal candidiasis [Unknown]
  - Mental disorder [Unknown]
